FAERS Safety Report 8907914 (Version 1)
Quarter: 2012Q4

REPORT INFORMATION
  Report Type: 
  Country: AU (occurrence: AU)
  Receive Date: 20121114
  Receipt Date: 20121114
  Transmission Date: 20130627
  Serious: Yes (Death)
  Sender: FDA-Public Use
  Company Number: PHHY2012AU104219

PATIENT
  Age: 49 Year
  Sex: Female

DRUGS (1)
  1. CLOZARIL [Suspect]
     Dosage: 600 mg, UNK
     Dates: start: 20020708

REACTIONS (3)
  - Death [Fatal]
  - Palpitations [Unknown]
  - Chest pain [Unknown]
